FAERS Safety Report 23189447 (Version 1)
Quarter: 2023Q4

REPORT INFORMATION
  Report Type: Report from Study
  Country: TR (occurrence: TR)
  Receive Date: 20231116
  Receipt Date: 20231116
  Transmission Date: 20240109
  Serious: Yes (Hospitalization, Other)
  Sender: FDA-Public Use
  Company Number: TR-ALXN-202311TUR000036TR

PATIENT
  Sex: Female
  Weight: 51 kg

DRUGS (1)
  1. SOLIRIS [Suspect]
     Active Substance: ECULIZUMAB
     Indication: Atypical haemolytic uraemic syndrome
     Dosage: 600 MILLIGRAM, EVERY 28 DAYS
     Route: 042

REACTIONS (5)
  - Atypical haemolytic uraemic syndrome [Unknown]
  - Condition aggravated [Unknown]
  - Blood urea increased [Unknown]
  - Blood creatinine increased [Unknown]
  - Off label use [Unknown]
